FAERS Safety Report 9478677 (Version 1)
Quarter: 2013Q3

REPORT INFORMATION
  Report Type: Spontaneous
  Country: US (occurrence: US)
  Receive Date: 20130827
  Receipt Date: 20130827
  Transmission Date: 20140515
  Serious: No
  Sender: FDA-Public Use
  Company Number: US-009507513-1308USA009702

PATIENT
  Sex: Male

DRUGS (2)
  1. NASONEX [Suspect]
     Dosage: NASONEX AEROSOL 50, ONE SPRAY IN EACH NOSTRIL, QD
     Route: 045
     Dates: start: 2008
  2. NASONEX [Suspect]
     Dosage: DOSE: ONE SPRAY IN EACH NOSTRIL, QD
     Route: 045

REACTIONS (3)
  - Poor quality drug administered [Unknown]
  - Product quality issue [Unknown]
  - No adverse event [Unknown]
